FAERS Safety Report 16723518 (Version 3)
Quarter: 2024Q1

REPORT INFORMATION
  Report Type: Spontaneous
  Country: PL (occurrence: PL)
  Receive Date: 20190821
  Receipt Date: 20240117
  Transmission Date: 20240409
  Serious: Yes (Death, Hospitalization, Disabling, Other)
  Sender: FDA-Public Use
  Company Number: None

PATIENT
  Age: 10 Year
  Sex: Female

DRUGS (11)
  1. MYCOPHENOLATE MOFETIL [Suspect]
     Active Substance: MYCOPHENOLATE MOFETIL
     Indication: Neurosarcoidosis
     Route: 065
  2. PREDNISONE [Suspect]
     Active Substance: PREDNISONE
     Indication: Immunosuppression
  3. CYCLOPHOSPHAMIDE [Suspect]
     Active Substance: CYCLOPHOSPHAMIDE
     Indication: Neurosarcoidosis
     Route: 065
  4. METHYLPREDNISOLONE [Suspect]
     Active Substance: METHYLPREDNISOLONE
     Indication: Immunomodulatory therapy
     Route: 065
  5. MABTHERA [Suspect]
     Active Substance: RITUXIMAB
     Indication: Neurosarcoidosis
     Route: 065
  6. RITUXIMAB [Suspect]
     Active Substance: RITUXIMAB
     Indication: Immunosuppressant drug therapy
  7. AZATHIOPRINE [Suspect]
     Active Substance: AZATHIOPRINE
     Indication: Immunosuppressant drug therapy
  8. PREDNISONE [Suspect]
     Active Substance: PREDNISONE
     Indication: Immunomodulatory therapy
  9. METHYLPREDNISOLONE [Suspect]
     Active Substance: METHYLPREDNISOLONE
     Indication: Immunosuppression
     Route: 065
  10. METHYLPREDNISOLONE [Suspect]
     Active Substance: METHYLPREDNISOLONE
     Indication: Steroid therapy
  11. PREDNISONE [Suspect]
     Active Substance: PREDNISONE
     Indication: Steroid therapy

REACTIONS (17)
  - Blindness [Unknown]
  - Central nervous system function test abnormal [Unknown]
  - Extrapyramidal disorder [Unknown]
  - Aphasia [Unknown]
  - Dementia [Not Recovered/Not Resolved]
  - Concomitant disease progression [Fatal]
  - Germ cell cancer [Fatal]
  - Cerebral atrophy [Fatal]
  - Product use in unapproved indication [Fatal]
  - Drug ineffective [Unknown]
  - Therapy non-responder [Fatal]
  - Disseminated intravascular coagulation [Fatal]
  - Quadriparesis [Unknown]
  - Product use issue [Unknown]
  - Renal failure [Fatal]
  - Pancytopenia [Fatal]
  - Sleep disorder [Unknown]
